FAERS Safety Report 24986304 (Version 2)
Quarter: 2025Q1

REPORT INFORMATION
  Report Type: Spontaneous
  Country: US (occurrence: US)
  Receive Date: 20250219
  Receipt Date: 20250318
  Transmission Date: 20250409
  Serious: No
  Sender: SUNOVION
  Company Number: US-SMPA-2025SPA001340AA

PATIENT

DRUGS (11)
  1. ORGOVYX [Suspect]
     Active Substance: RELUGOLIX
     Indication: Prostate cancer
     Dosage: 360 MG, SINGLE
     Route: 048
     Dates: start: 20250201, end: 20250201
  2. ORGOVYX [Suspect]
     Active Substance: RELUGOLIX
     Dosage: 120 MG, QD
     Route: 048
     Dates: start: 20250202
  3. GLIMEPIRIDE [Concomitant]
     Active Substance: GLIMEPIRIDE
     Route: 065
  4. EZETIMIBE [Concomitant]
     Active Substance: EZETIMIBE
     Route: 065
  5. ESCITALOPRAM [Concomitant]
     Active Substance: ESCITALOPRAM OXALATE
     Route: 065
  6. MORPHINE SULFATE [Concomitant]
     Active Substance: MORPHINE SULFATE
     Route: 065
  7. LANTUS [Concomitant]
     Active Substance: INSULIN GLARGINE
     Route: 058
  8. HUMALOG [Concomitant]
     Active Substance: INSULIN LISPRO
     Route: 058
  9. LINZESS [Concomitant]
     Active Substance: LINACLOTIDE
     Route: 065
  10. NUBEQA [Concomitant]
     Active Substance: DAROLUTAMIDE
     Route: 065
  11. MORPHINE [Concomitant]
     Active Substance: MORPHINE
     Route: 065

REACTIONS (11)
  - Thirst [Unknown]
  - Decreased appetite [Unknown]
  - Muscle fatigue [Unknown]
  - Somnolence [Unknown]
  - Urticaria [Unknown]
  - Pruritus [Unknown]
  - Bacterial infection [Unknown]
  - Abdominal pain upper [Unknown]
  - Headache [Recovering/Resolving]
  - Fatigue [Unknown]
  - Myalgia [Unknown]
